FAERS Safety Report 17107576 (Version 1)
Quarter: 2019Q4

REPORT INFORMATION
  Report Type: Spontaneous
  Country: FR (occurrence: FR)
  Receive Date: 20191203
  Receipt Date: 20191203
  Transmission Date: 20200122
  Serious: Yes (Hospitalization)
  Sender: FDA-Public Use
  Company Number: FR-MYLANLABS-2019M1116569

PATIENT
  Age: 71 Year
  Sex: Male
  Weight: 70.8 kg

DRUGS (10)
  1. CRESTOR [Concomitant]
     Active Substance: ROSUVASTATIN CALCIUM
     Dosage: UNK
  2. RAMIPRIL. [Concomitant]
     Active Substance: RAMIPRIL
     Dosage: UNK
  3. INEXIUM                            /01479303/ [Concomitant]
     Active Substance: ESOMEPRAZOLE
     Dosage: UNK
  4. PERMIXON [Concomitant]
     Active Substance: HERBALS\SAW PALMETTO
     Dosage: UNK
  5. MECIR [Concomitant]
     Active Substance: TAMSULOSIN HYDROCHLORIDE
     Dosage: UNK
  6. TADALAFIL. [Suspect]
     Active Substance: TADALAFIL
     Indication: BENIGN PROSTATIC HYPERPLASIA
     Dosage: 5 MILLIGRAM, QD
     Route: 048
     Dates: end: 201905
  7. KARDEGIC [Suspect]
     Active Substance: ASPIRIN DL-LYSINE
     Indication: THROMBOSIS PROPHYLAXIS
     Dosage: 75 MILLIGRAM, QD
     Route: 048
  8. BRILIQUE [Suspect]
     Active Substance: TICAGRELOR
     Indication: THROMBOSIS PROPHYLAXIS
     Dosage: 180 MILLIGRAM, QD
     Route: 048
     Dates: end: 201905
  9. BISOPROLOL [Concomitant]
     Active Substance: BISOPROLOL
     Dosage: UNK
  10. OFLOCET                            /00731801/ [Concomitant]
     Active Substance: OFLOXACIN
     Dosage: UNK

REACTIONS (1)
  - Subdural haematoma [Recovering/Resolving]

NARRATIVE: CASE EVENT DATE: 20190529
